FAERS Safety Report 4390533-9 (Version None)
Quarter: 2004Q2

REPORT INFORMATION
  Report Type: 
  Country: None (occurrence: None)
  Receive Date: 20040630
  Receipt Date: 20040616
  Transmission Date: 20050107
  Serious: Yes (Hospitalization)
  Sender: FDA-Public Use
  Company Number: 2003IM000684

PATIENT
  Age: 66 Year
  Sex: Female
  Weight: 55.3388 kg

DRUGS (9)
  1. ACTIMMUNE [Suspect]
     Indication: INTERSTITIAL LUNG DISEASE
     Dosage: 100 UG; TIW; SUBCUTANEOUS
     Route: 058
     Dates: start: 20030115, end: 20030408
  2. PRILOSEC [Concomitant]
  3. BOSENTAN [Concomitant]
  4. LASIX [Concomitant]
  5. POTASSIUM CHLORIDE [Concomitant]
  6. LEVAQUIN [Concomitant]
  7. PREDNISONE [Concomitant]
  8. MULTI-VITAMINS [Concomitant]
  9. COUMADIN [Concomitant]

REACTIONS (2)
  - CONDITION AGGRAVATED [None]
  - DYSPNOEA [None]
